FAERS Safety Report 4436470-2 (Version None)
Quarter: 2004Q3

REPORT INFORMATION
  Report Type: 
  Country: None (occurrence: None)
  Receive Date: 20040830
  Receipt Date: 20040524
  Transmission Date: 20050211
  Serious: No
  Sender: FDA-Public Use
  Company Number: US-BRISTOL-MYERS SQUIBB COMPANY-12594529

PATIENT
  Sex: Male

DRUGS (2)
  1. ABILIFY [Suspect]
  2. SERZONE [Suspect]

REACTIONS (2)
  - CHROMATURIA [None]
  - PAIN IN EXTREMITY [None]
